FAERS Safety Report 25660281 (Version 2)
Quarter: 2025Q3

REPORT INFORMATION
  Report Type: Report from Study
  Country: PH (occurrence: PH)
  Receive Date: 20250808
  Receipt Date: 20250829
  Transmission Date: 20251020
  Serious: Yes (Hospitalization)
  Sender: TAKEDA
  Company Number: PH-TAKEDA-2025TUS069437

PATIENT
  Sex: Male

DRUGS (2)
  1. VEDOLIZUMAB [Suspect]
     Active Substance: VEDOLIZUMAB
     Indication: Crohn^s disease
  2. AZATHIOPRINE [Suspect]
     Active Substance: AZATHIOPRINE
     Indication: Product used for unknown indication

REACTIONS (1)
  - Infection [Unknown]
